FAERS Safety Report 25715535 (Version 1)
Quarter: 2025Q3

REPORT INFORMATION
  Report Type: Spontaneous
  Country: CN (occurrence: CN)
  Receive Date: 20250822
  Receipt Date: 20250822
  Transmission Date: 20251020
  Serious: Yes (Life-Threatening, Other)
  Sender: BRACCO
  Company Number: CN-BRACCO-2025CN05354

PATIENT
  Age: 40 Year
  Sex: Male

DRUGS (1)
  1. IOMERON [Suspect]
     Active Substance: IOMEPROL
     Indication: Computerised tomogram thorax
     Route: 042
     Dates: start: 20250731, end: 20250731

REACTIONS (5)
  - Unresponsive to stimuli [Unknown]
  - Cardio-respiratory arrest [Recovered/Resolved]
  - Loss of consciousness [Unknown]
  - Asphyxia [Unknown]
  - Obstructive airways disorder [Unknown]

NARRATIVE: CASE EVENT DATE: 20250731
